FAERS Safety Report 10363297 (Version 2)
Quarter: 2014Q3

REPORT INFORMATION
  Report Type: Spontaneous
  Country: BR (occurrence: BR)
  Receive Date: 20140805
  Receipt Date: 20140805
  Transmission Date: 20150326
  Serious: Yes (Death)
  Sender: FDA-Public Use
  Company Number: BR-AMGEN-BRASP2014057157

PATIENT
  Age: 60 Year
  Sex: Female

DRUGS (1)
  1. GRANULOKINE [Suspect]
     Active Substance: FILGRASTIM
     Indication: LEUKOPENIA
     Dosage: UNK
     Route: 065
     Dates: start: 20140328

REACTIONS (3)
  - Bone marrow failure [Fatal]
  - Cerebral haemorrhage [Fatal]
  - Brain death [Fatal]
